FAERS Safety Report 8949813 (Version 1)
Quarter: 2012Q4

REPORT INFORMATION
  Report Type: 
  Country: NL (occurrence: NL)
  Receive Date: 20121206
  Receipt Date: 20121206
  Transmission Date: 20130627
  Serious: Yes (Other)
  Sender: FDA-Public Use
  Company Number: NL-ROCHE-1161413

PATIENT
  Age: 63 Year
  Sex: Female

DRUGS (1)
  1. VEMURAFENIB [Suspect]
     Indication: METASTATIC MALIGNANT MELANOMA
     Route: 048

REACTIONS (4)
  - Iridocyclitis [Not Recovered/Not Resolved]
  - Choroiditis [Not Recovered/Not Resolved]
  - Scleritis [Unknown]
  - Optic neuritis [Unknown]
